FAERS Safety Report 6573623-1 (Version None)
Quarter: 2010Q1

REPORT INFORMATION
  Report Type: 
  Country: None (occurrence: None)
  Receive Date: 20100208
  Receipt Date: 20100129
  Transmission Date: 20100710
  Serious: Yes (Death)
  Sender: FDA-Public Use
  Company Number: US-ROCHE-682735

PATIENT
  Sex: Male
  Weight: 128.4 kg

DRUGS (1)
  1. XELODA [Suspect]
     Indication: OESOPHAGEAL CANCER METASTATIC
     Dosage: 03 WEEKS ON, 01 WEEK OFF.
     Route: 048

REACTIONS (2)
  - MALIGNANT NEOPLASM PROGRESSION [None]
  - PLEURAL EFFUSION [None]
